FAERS Safety Report 11281359 (Version 1)
Quarter: 2015Q3

REPORT INFORMATION
  Report Type: Not Available
  Country: CH (occurrence: CH)
  Receive Date: 20150717
  Receipt Date: 20150717
  Transmission Date: 20151125
  Serious: Yes (Hospitalization)
  Sender: FDA-Public Use
  Company Number: CH-NAPPMUNDI-DEU-2015-0016993

PATIENT
  Age: 79 Year
  Sex: Male
  Weight: 65 kg

DRUGS (14)
  1. DEXAMETHASONE. [Concomitant]
     Active Substance: DEXAMETHASONE
     Dosage: 4 MG, BID
     Route: 048
     Dates: start: 20150420
  2. CLEXANE [Concomitant]
     Active Substance: ENOXAPARIN SODIUM
     Dosage: 40 MG, DAILY
     Route: 058
     Dates: start: 20150529, end: 20150602
  3. LYRICA [Concomitant]
     Active Substance: PREGABALIN
     Dosage: 75 MG, DAILY
     Route: 048
     Dates: start: 20150420, end: 20150602
  4. DUROGESIC [Interacting]
     Active Substance: FENTANYL
     Indication: PAIN
     Dosage: 50 MCG, Q1H
     Route: 062
     Dates: start: 20150526, end: 20150602
  5. NEXIUM [Concomitant]
     Active Substance: ESOMEPRAZOLE MAGNESIUM
     Dosage: 40 MG, DAILY
     Route: 048
     Dates: start: 20150528
  6. BIOFLORIN                          /01639001/ [Concomitant]
     Dosage: UNK, PRN
     Route: 048
     Dates: start: 20150601, end: 20150602
  7. VENTOLIN [Concomitant]
     Active Substance: ALBUTEROL SULFATE
     Dosage: UNK
     Route: 055
  8. DUROGESIC [Interacting]
     Active Substance: FENTANYL
     Indication: PAIN
     Dosage: 50 MCG, Q1H
     Route: 062
     Dates: start: 20150601, end: 20150602
  9. TRANXILIUM [Concomitant]
     Active Substance: CLORAZEPATE DIPOTASSIUM
     Dosage: 10 MG, DAILY
     Route: 048
     Dates: start: 20150528, end: 20150602
  10. OXYNORM CAPSULE [Suspect]
     Active Substance: OXYCODONE HYDROCHLORIDE
     Indication: PRODUCT USED FOR UNKNOWN INDICATION
     Dosage: 5 MG, PRN
     Route: 048
     Dates: start: 20150529, end: 20150602
  11. LAXOBERON [Concomitant]
     Active Substance: SODIUM PICOSULFATE
     Dosage: 15 GTT, DAILY
     Route: 048
     Dates: start: 20150530, end: 20150602
  12. DUROGESIC [Interacting]
     Active Substance: FENTANYL
     Indication: PAIN
     Dosage: 75 MCG, Q1H
     Route: 062
     Dates: start: 20150529, end: 20150602
  13. DUROGESIC [Interacting]
     Active Substance: FENTANYL
     Dosage: 50 MCG, Q1H
     Route: 062
     Dates: start: 20150420, end: 201505
  14. ZOFRAN [Concomitant]
     Active Substance: ONDANSETRON HYDROCHLORIDE
     Dosage: 4 MG, TID PRN
     Route: 042
     Dates: start: 20150601, end: 20150602

REACTIONS (7)
  - Toxicity to various agents [Recovered/Resolved]
  - Hypotension [Recovered/Resolved]
  - Accidental overdose [Recovered/Resolved]
  - Depressed level of consciousness [Recovered/Resolved]
  - Pneumonia aspiration [Recovered/Resolved]
  - Oxygen saturation decreased [Recovered/Resolved]
  - Sinus tachycardia [None]

NARRATIVE: CASE EVENT DATE: 20150602
